FAERS Safety Report 7313824-8 (Version None)
Quarter: 2011Q1

REPORT INFORMATION
  Report Type: 
  Country: None (occurrence: None)
  Receive Date: 20110225
  Receipt Date: 20110215
  Transmission Date: 20110831
  Serious: Yes (Other)
  Sender: FDA-Public Use
  Company Number: US-SANOFI-AVENTIS-2011SA002632

PATIENT
  Age: 80 Year
  Weight: 64 kg

DRUGS (7)
  1. ENALAPRIL MALEATE [Concomitant]
     Indication: HYPERTENSION
  2. LIPITOR [Concomitant]
     Dates: start: 20010101
  3. METOPROLOL SUCCINATE [Concomitant]
     Indication: HYPERTENSION
  4. HYDROCHLOROTHIAZIDE [Concomitant]
     Indication: HYPERTENSION
     Dates: start: 20060101
  5. LEVOTHYROXINE [Concomitant]
     Indication: HYPOTHYROIDISM
     Dates: start: 20040101
  6. PREMARIN [Concomitant]
  7. MULTAQ [Suspect]
     Indication: ATRIAL FIBRILLATION
     Route: 048
     Dates: start: 20101227, end: 20101229

REACTIONS (4)
  - ABDOMINAL PAIN [None]
  - ATRIAL FIBRILLATION [None]
  - FATIGUE [None]
  - VOMITING [None]
